FAERS Safety Report 5428807-2 (Version None)
Quarter: 2007Q3

REPORT INFORMATION
  Report Type: 
  Country: None (occurrence: None)
  Receive Date: 20070829
  Receipt Date: 20060731
  Transmission Date: 20080115
  Serious: No
  Sender: FDA-Public Use
  Company Number: A0614886A

PATIENT
  Sex: Male

DRUGS (1)
  1. ZOVIRAX [Suspect]
     Indication: DRUG USE FOR UNKNOWN INDICATION
     Route: 061

REACTIONS (5)
  - BURNING SENSATION [None]
  - DRY SKIN [None]
  - ERYTHEMA [None]
  - HYPERAESTHESIA [None]
  - SKIN CHAPPED [None]
